FAERS Safety Report 17294664 (Version 4)
Quarter: 2020Q2

REPORT INFORMATION
  Report Type: Spontaneous
  Country: US (occurrence: US)
  Receive Date: 20200121
  Receipt Date: 20200422
  Transmission Date: 20200713
  Serious: Yes (Hospitalization)
  Sender: FDA-Public Use
  Company Number: US-PFIZER INC-2020023528

PATIENT
  Age: 49 Year
  Sex: Female

DRUGS (1)
  1. IBRANCE [Suspect]
     Active Substance: PALBOCICLIB
     Indication: BREAST CANCER FEMALE
     Dosage: 125 MG, CYCLIC (TAKE 1 CAPSULE BY MOUTH DAILY FOR 21 CONSECUTIVE DAYS, FOLLOWED BY 7 DAYS OFF)
     Route: 048
     Dates: start: 20191216, end: 20200216

REACTIONS (10)
  - Pneumonia [Unknown]
  - Pain [Unknown]
  - Blood count abnormal [Unknown]
  - Neck pain [Unknown]
  - Bone pain [Unknown]
  - Pyrexia [Unknown]
  - Nausea [Unknown]
  - Fatigue [Unknown]
  - Headache [Unknown]
  - Neutrophil count decreased [Unknown]
